FAERS Safety Report 22383015 (Version 1)
Quarter: 2023Q2

REPORT INFORMATION
  Report Type: Spontaneous
  Country: CN (occurrence: CN)
  Receive Date: 20230530
  Receipt Date: 20230530
  Transmission Date: 20230721
  Serious: Yes (Other)
  Sender: FDA-Public Use
  Company Number: CN-PFIZER INC-PV202300093084

PATIENT
  Age: 77 Year
  Sex: Male
  Weight: 52.5 kg

DRUGS (6)
  1. NIRMATRELVIR\RITONAVIR [Suspect]
     Active Substance: NIRMATRELVIR\RITONAVIR
     Indication: Coronavirus infection
     Dosage: 3 TABLETS, 1X/DAY
     Route: 048
     Dates: start: 20230514, end: 20230516
  2. HERBALS [Concomitant]
     Active Substance: HERBALS
     Indication: Cerebrovascular insufficiency
     Dosage: 40 ML, 1X/DAY
     Route: 041
     Dates: start: 20230514, end: 20230523
  3. BUDESONIDE [Concomitant]
     Active Substance: BUDESONIDE
     Indication: Chronic obstructive pulmonary disease
     Dosage: 1 MG, 1X/DAY
     Dates: start: 20230514, end: 20230523
  4. SODIUM CHLORIDE [Concomitant]
     Active Substance: SODIUM CHLORIDE
     Indication: Vehicle solution use
     Dosage: 250 ML, 1X/DAY
     Route: 041
     Dates: start: 20230514, end: 20230523
  5. SODIUM CHLORIDE [Concomitant]
     Active Substance: SODIUM CHLORIDE
     Indication: Vehicle solution use
     Dosage: 1 ML, 1X/DAY
     Dates: start: 20230514, end: 20230523
  6. LEVALBUTEROL HYDROCHLORIDE [Concomitant]
     Active Substance: LEVALBUTEROL HYDROCHLORIDE
     Indication: Chronic obstructive pulmonary disease
     Dosage: 0.63 MG, 1X/DAY
     Dates: start: 20230514, end: 20230523

REACTIONS (3)
  - Hallucination [Recovering/Resolving]
  - Dizziness [Recovering/Resolving]
  - Incorrect dose administered [Unknown]

NARRATIVE: CASE EVENT DATE: 20230514
